FAERS Safety Report 6823028-0 (Version None)
Quarter: 2010Q3

REPORT INFORMATION
  Report Type: 
  Country: None (occurrence: None)
  Receive Date: 20100708
  Receipt Date: 20100628
  Transmission Date: 20110219
  Serious: Yes (Hospitalization, Disabling)
  Sender: FDA-Public Use
  Company Number: B0561744A

PATIENT
  Sex: Male

DRUGS (11)
  1. VALACYCLOVIR [Suspect]
     Indication: HERPES ZOSTER
     Dosage: 1000MG THREE TIMES PER DAY
     Route: 048
     Dates: start: 20090218, end: 20090221
  2. ACYCLOVIR [Suspect]
  3. LOSARTAN WITH HYDROCHLOROTHIAZIDE [Concomitant]
     Route: 048
     Dates: end: 20090221
  4. WARFARIN SODIUM [Concomitant]
     Indication: ATRIAL FIBRILLATION
     Dosage: 2.5MG PER DAY
     Route: 048
     Dates: end: 20090221
  5. ASPIRIN [Concomitant]
     Indication: ATRIAL FIBRILLATION
     Dosage: 100MG PER DAY
     Route: 048
     Dates: end: 20090221
  6. HYPEN [Concomitant]
     Dosage: 400MG PER DAY
     Route: 048
     Dates: end: 20090221
  7. VASOLAN [Concomitant]
     Indication: ATRIAL FIBRILLATION
     Dosage: 80MG PER DAY
     Route: 048
     Dates: end: 20090221
  8. MUCOSTA [Concomitant]
     Dosage: 200MG PER DAY
     Route: 048
     Dates: end: 20090221
  9. CRESTOR [Concomitant]
     Dosage: 2.5MG PER DAY
     Route: 048
  10. LUPRAC [Concomitant]
     Dosage: 8MG PER DAY
     Route: 048
  11. LOSARTAN POTASSIUM AND HYDROCHLOROTHIAZIDE [Concomitant]
     Route: 048
     Dates: start: 20090221

REACTIONS (9)
  - ALTERED STATE OF CONSCIOUSNESS [None]
  - DIZZINESS [None]
  - ENCEPHALOPATHY [None]
  - GAIT DISTURBANCE [None]
  - RENAL FAILURE ACUTE [None]
  - RENAL FAILURE CHRONIC [None]
  - RESPIRATORY DISORDER [None]
  - RESTLESSNESS [None]
  - URINE OUTPUT DECREASED [None]
